FAERS Safety Report 5753075-1 (Version None)
Quarter: 2008Q2

REPORT INFORMATION
  Report Type: 
  Country: None (occurrence: None)
  Receive Date: 20080527
  Receipt Date: 20080515
  Transmission Date: 20081010
  Serious: Yes (Other)
  Sender: FDA-Public Use
  Company Number: 2008-01075

PATIENT
  Age: 62 Year
  Sex: Male

DRUGS (5)
  1. VELCADE [Suspect]
     Indication: DRUG USE FOR UNKNOWN INDICATION
     Dates: start: 20071214, end: 20080303
  2. DEXAMETHASONE TAB [Concomitant]
  3. OMEPRAZOLE [Concomitant]
  4. ACYCLOVIR [Concomitant]
  5. WARFARIN SODIUM [Concomitant]

REACTIONS (2)
  - ERECTILE DYSFUNCTION [None]
  - PAIN IN EXTREMITY [None]
